FAERS Safety Report 10761876 (Version 1)
Quarter: 2015Q1

REPORT INFORMATION
  Report Type: Spontaneous
  Country: None (occurrence: None)
  Receive Date: 20150203
  Receipt Date: 20150203
  Transmission Date: 20150721
  Serious: Yes (Life-Threatening, Hospitalization)
  Sender: FDA-Public Use
  Company Number: None

PATIENT
  Age: 84 Year
  Sex: Male
  Weight: 74 kg

DRUGS (12)
  1. SOD PHOS, DI + MONO-K PHOS MONO (PHOSPHA 250 NEUTRAL) [Concomitant]
  2. ASPIRIN 81 MG EC [Concomitant]
  3. CALCIUM CARBONATE-VITAMIN D3 (CALCIUM 600 + D,3) [Concomitant]
  4. TRIAMCINOLONE (KENALOG) [Concomitant]
  5. AMLODIPINE (NORVASC) [Concomitant]
  6. LIPITOR [Concomitant]
     Active Substance: ATORVASTATIN CALCIUM
  7. HYDROCODONE-ACETAMINOPHEN (NORCO) [Concomitant]
  8. SODIUM BICARBONATE. [Concomitant]
     Active Substance: SODIUM BICARBONATE
  9. CASODEX [Concomitant]
     Active Substance: BICALUTAMIDE
  10. XGEVA [Suspect]
     Active Substance: DENOSUMAB
  11. TYLENOL [Concomitant]
     Active Substance: ACETAMINOPHEN
  12. TRAZODONE (DESYREL) [Concomitant]

REACTIONS (5)
  - Hypocalcaemia [None]
  - Bradycardia [None]
  - Syncope [None]
  - Electrolyte imbalance [None]
  - Asthenia [None]

NARRATIVE: CASE EVENT DATE: 20141211
